FAERS Safety Report 23533824 (Version 3)
Quarter: 2024Q1

REPORT INFORMATION
  Report Type: Spontaneous
  Country: US (occurrence: US)
  Receive Date: 20240216
  Receipt Date: 20240312
  Transmission Date: 20240409
  Serious: No
  Sender: FDA-Public Use
  Company Number: US-PFIZER INC-202400039625

PATIENT
  Age: 59 Year
  Sex: Female
  Weight: 61.224 kg

DRUGS (6)
  1. PAXLOVID [Suspect]
     Active Substance: NIRMATRELVIR\RITONAVIR
     Indication: COVID-19 treatment
     Dosage: 300 MG/100 MG,  2X/DAY
     Route: 048
     Dates: start: 20240203, end: 20240207
  2. SYNTHROID [Concomitant]
     Active Substance: LEVOTHYROXINE SODIUM
     Indication: Thyroidectomy
     Dosage: UNK
     Route: 048
     Dates: start: 202108
  3. CALCITRIOL [Concomitant]
     Active Substance: CALCITRIOL
     Indication: Thyroidectomy
     Dosage: UNK
     Route: 048
     Dates: start: 202108
  4. SUMATRIPTAN [Concomitant]
     Active Substance: SUMATRIPTAN
     Indication: Headache
  5. CALCIUM [Concomitant]
     Active Substance: CALCIUM
     Indication: Thyroidectomy
     Dosage: UNK
     Route: 048
     Dates: start: 202108
  6. VITAMIN D NOS [Concomitant]
     Active Substance: VITAMIN D NOS
     Indication: Thyroidectomy
     Dosage: UNK
     Route: 048
     Dates: start: 202108

REACTIONS (3)
  - COVID-19 [Recovered/Resolved]
  - Disease recurrence [Recovered/Resolved]
  - Dysgeusia [Unknown]

NARRATIVE: CASE EVENT DATE: 20240212
